FAERS Safety Report 23016200 (Version 1)
Quarter: 2023Q4

REPORT INFORMATION
  Report Type: Spontaneous
  Country: US (occurrence: US)
  Receive Date: 20231002
  Receipt Date: 20231002
  Transmission Date: 20240109
  Serious: No
  Sender: FDA-Public Use
  Company Number: US-HARMONY BIOSCIENCES-2023HMY01026

PATIENT
  Age: 36 Year
  Sex: Female

DRUGS (1)
  1. WAKIX [Suspect]
     Active Substance: PITOLISANT HYDROCHLORIDE
     Indication: Narcolepsy
     Dosage: UNK
     Dates: start: 202306

REACTIONS (2)
  - Mental disorder [Unknown]
  - Myalgia [Unknown]

NARRATIVE: CASE EVENT DATE: 20230601
